FAERS Safety Report 12506295 (Version 1)
Quarter: 2016Q2

REPORT INFORMATION
  Report Type: Spontaneous
  Country: US (occurrence: US)
  Receive Date: 20160628
  Receipt Date: 20160628
  Transmission Date: 20160815
  Serious: Yes (Other)
  Sender: FDA-Public Use
  Company Number: US-BRACCO-013128

PATIENT
  Age: 45 Year
  Sex: Female

DRUGS (1)
  1. PROHANCE [Suspect]
     Active Substance: GADOTERIDOL
     Indication: NUCLEAR MAGNETIC RESONANCE IMAGING HEART
     Dosage: EXPIRATION DATE: FEB-2018 FOR LOT# 5C31507; EXPIRATION DATE: JUN-2018 FOR LOT# 5G36580
     Route: 042
     Dates: start: 20160122, end: 20160122

REACTIONS (5)
  - Nausea [Recovering/Resolving]
  - Vomiting [Recovering/Resolving]
  - Tachycardia [Recovering/Resolving]
  - Dysphagia [Recovering/Resolving]
  - Swollen tongue [Recovering/Resolving]

NARRATIVE: CASE EVENT DATE: 20160122
